FAERS Safety Report 6540372-5 (Version None)
Quarter: 2010Q1

REPORT INFORMATION
  Report Type: 
  Country: None (occurrence: None)
  Receive Date: 20100115
  Receipt Date: 20100105
  Transmission Date: 20100710
  Serious: Yes (Other)
  Sender: FDA-Public Use
  Company Number: JP-MERCK-1001USA00412

PATIENT
  Sex: Female

DRUGS (2)
  1. FOSAMAX [Suspect]
     Route: 048
     Dates: start: 20091101
  2. FOSAMAX [Suspect]
     Route: 048
     Dates: start: 20090201, end: 20090801

REACTIONS (2)
  - DEAFNESS [None]
  - TINNITUS [None]
